FAERS Safety Report 19504240 (Version 4)
Quarter: 2021Q3

REPORT INFORMATION
  Report Type: Report from Study
  Country: MX (occurrence: MX)
  Receive Date: 20210707
  Receipt Date: 20210810
  Transmission Date: 20211014
  Serious: Yes (Other)
  Sender: FDA-Public Use
  Company Number: MX-BAYER-2021-164463

PATIENT
  Age: 70 Year
  Sex: Male
  Weight: 47 kg

DRUGS (10)
  1. METHYLPREDNISOLONE. [Concomitant]
     Active Substance: METHYLPREDNISOLONE
     Dosage: 80 MG
     Route: 042
  2. STIVARGA [Suspect]
     Active Substance: REGORAFENIB
     Indication: COLORECTAL CANCER
     Dosage: 120 MG, QD
     Route: 048
     Dates: start: 20210722
  3. BUPRENORPHINE. [Concomitant]
     Active Substance: BUPRENORPHINE
     Indication: PAIN
     Dosage: 3/4 OF PATCH EVERY 3 DAYS
     Dates: start: 20210722
  4. LEVOFLOXACIN. [Concomitant]
     Active Substance: LEVOFLOXACIN
     Dosage: 500 MG, QD, FOR 7 DAYS
     Route: 048
     Dates: start: 20210715
  5. BUTYLSCOPOLAMIN [Concomitant]
     Dosage: 10 MG
     Route: 042
  6. LOPERAMIDE [Concomitant]
     Active Substance: LOPERAMIDE
     Dosage: 2 TABLETS IN THE MORNING AND 2 TABLETS IN THE AFTERNOON
     Route: 048
  7. PREGABALIN. [Concomitant]
     Active Substance: PREGABALIN
     Dosage: 1 DF, BID
     Route: 048
     Dates: start: 20210722
  8. STIVARGA [Suspect]
     Active Substance: REGORAFENIB
     Indication: COLORECTAL CANCER
     Dosage: DAILY DOSE 160 MG
     Route: 048
     Dates: start: 20210618, end: 20210705
  9. OMEPRAZOLE. [Concomitant]
     Active Substance: OMEPRAZOLE
     Dosage: 40 MG
     Route: 042
  10. BUPRENORPHINE. [Concomitant]
     Active Substance: BUPRENORPHINE
     Indication: PAIN
     Dosage: 1/4 OF A PATCH AS NEEDED (PRN), TODAY STARTS WITH 1/2 PATCH EVERY 3 DAYS
     Route: 048
     Dates: start: 20210705

REACTIONS (40)
  - Dyspnoea [Not Recovered/Not Resolved]
  - Dysphonia [Recovering/Resolving]
  - Epistaxis [Not Recovered/Not Resolved]
  - Dysphonia [Recovering/Resolving]
  - Pyrexia [Recovered/Resolved]
  - Dyspnoea [Recovering/Resolving]
  - Product dose omission issue [None]
  - Burning sensation [Recovering/Resolving]
  - Mouth ulceration [Not Recovered/Not Resolved]
  - Bone pain [Recovering/Resolving]
  - Alopecia [Not Recovered/Not Resolved]
  - Skin burning sensation [Recovering/Resolving]
  - Pain in extremity [Recovering/Resolving]
  - Hypotension [Unknown]
  - Back pain [Not Recovered/Not Resolved]
  - Alopecia [Not Recovered/Not Resolved]
  - Rash [Recovering/Resolving]
  - Dehydration [Not Recovered/Not Resolved]
  - Pain in extremity [Recovering/Resolving]
  - Oxygen saturation decreased [Unknown]
  - Gingival pain [Recovering/Resolving]
  - Gingival oedema [Recovering/Resolving]
  - Back pain [Not Recovered/Not Resolved]
  - Bone pain [Not Recovered/Not Resolved]
  - Arthralgia [Recovering/Resolving]
  - Pyrexia [Recovered/Resolved]
  - Epistaxis [Recovered/Resolved]
  - Gingival swelling [Recovering/Resolving]
  - Neck pain [Recovering/Resolving]
  - Pyrexia [Not Recovered/Not Resolved]
  - Aphonia [Not Recovered/Not Resolved]
  - Epistaxis [Not Recovered/Not Resolved]
  - Rash macular [Recovered/Resolved]
  - Arthralgia [Recovering/Resolving]
  - Hyperthermia [None]
  - Fatigue [Not Recovered/Not Resolved]
  - Dyspnoea [Not Recovered/Not Resolved]
  - Dysphonia [Not Recovered/Not Resolved]
  - Headache [Recovering/Resolving]
  - Infection [Not Recovered/Not Resolved]

NARRATIVE: CASE EVENT DATE: 20210618
